FAERS Safety Report 11045159 (Version 1)
Quarter: 2015Q2

REPORT INFORMATION
  Report Type: Spontaneous
  Country: US (occurrence: US)
  Receive Date: 20150417
  Receipt Date: 20150417
  Transmission Date: 20150821
  Serious: Yes (Other)
  Sender: FDA-Public Use
  Company Number: US-BAYER-2015-136690

PATIENT
  Age: 17 Year
  Sex: Female

DRUGS (14)
  1. KETOROLAC [Concomitant]
     Active Substance: KETOROLAC\KETOROLAC TROMETHAMINE
     Dosage: 30 MG, ONCE
  2. ACETAMINOPHEN. [Concomitant]
     Active Substance: ACETAMINOPHEN
     Dosage: 1 G, ONCE
  3. MIDAZOLAM [Concomitant]
     Active Substance: MIDAZOLAM\MIDAZOLAM HYDROCHLORIDE
     Dosage: 2 MG,
  4. LIDOCAINE W/EPINEPHRINE [Suspect]
     Active Substance: EPINEPHRINE\LIDOCAINE
     Indication: NASAL OPERATION
     Dosage: 2% LIDOCAINE; 1:100,000 EPINEPHRINE LOCAL INFILTRATE THROUGHOUT THE PROCEDURE
  5. PHENYLEPHRINE [Suspect]
     Active Substance: PHENYLEPHRINE\PHENYLEPHRINE HYDROCHLORIDE
     Dosage: 400 MG, ONCE
  6. PROPOFOL. [Concomitant]
     Active Substance: PROPOFOL
  7. SEVOFLURANE. [Concomitant]
     Active Substance: SEVOFLURANE
  8. HYDROMORPHONE [Concomitant]
     Active Substance: HYDROMORPHONE
  9. METHYLPREDNISOLONE. [Concomitant]
     Active Substance: METHYLPREDNISOLONE
     Dosage: 125 MG, EVERY 4 HOURS FOR 24 HOURS
  10. CISATRACURIUM [Concomitant]
     Active Substance: CISATRACURIUM
  11. OXYMETAZOLINE HYDROCHLORIDE. [Suspect]
     Active Substance: OXYMETAZOLINE HYDROCHLORIDE
     Indication: NASAL OPERATION
     Dosage: UNK, ONCE
     Route: 061
  12. ALBUTEROL. [Concomitant]
     Active Substance: ALBUTEROL
  13. FENTANYL. [Concomitant]
     Active Substance: FENTANYL
     Dosage: 350 MG
  14. MAGNESIUM [Concomitant]
     Active Substance: MAGNESIUM

REACTIONS (1)
  - Pupils unequal [Recovered/Resolved]
